FAERS Safety Report 9678361 (Version 1)
Quarter: 2013Q4

REPORT INFORMATION
  Report Type: Report from Study
  Country: US (occurrence: US)
  Receive Date: 20131108
  Receipt Date: 20131108
  Transmission Date: 20140711
  Serious: Yes (Other)
  Sender: FDA-Public Use
  Company Number: US-ROCHE-1298213

PATIENT
  Sex: Male

DRUGS (6)
  1. AVASTIN [Suspect]
     Indication: DIABETIC RETINAL OEDEMA
     Route: 065
  2. AVASTIN [Suspect]
     Indication: DIABETIC RETINOPATHY
  3. AVASTIN [Suspect]
     Indication: DIABETIC RETINOPATHY
  4. AVASTIN [Suspect]
     Indication: CATARACT
  5. AVASTIN [Suspect]
     Indication: DIABETIC EYE DISEASE
  6. AVASTIN [Suspect]
     Indication: OCULAR HYPERTENSION

REACTIONS (6)
  - Eye discharge [Unknown]
  - Intraocular pressure increased [Unknown]
  - Vision blurred [Unknown]
  - Visual impairment [Unknown]
  - Retinal exudates [Unknown]
  - Altered visual depth perception [Unknown]
